FAERS Safety Report 18507218 (Version 5)
Quarter: 2021Q1

REPORT INFORMATION
  Report Type: Report from Study
  Country: US (occurrence: US)
  Receive Date: 20201116
  Receipt Date: 20210310
  Transmission Date: 20210419
  Serious: Yes (Death, Hospitalization, Other)
  Sender: FDA-Public Use
  Company Number: US-TAKEDA-2019TUS012104

PATIENT
  Age: 70 Year
  Sex: Male

DRUGS (3)
  1. PONATINIB [Suspect]
     Active Substance: PONATINIB
     Indication: CHRONIC MYELOID LEUKAEMIA
     Dosage: UNK
     Route: 065
  2. PONATINIB [Suspect]
     Active Substance: PONATINIB
     Dosage: 15 MILLIGRAM, QD
     Route: 065
  3. PONATINIB [Suspect]
     Active Substance: PONATINIB
     Dosage: 45 MILLIGRAM, QD
     Route: 048
     Dates: start: 20190211

REACTIONS (7)
  - Blood pressure increased [Unknown]
  - Heart rate increased [Recovered/Resolved]
  - Product dose omission issue [Unknown]
  - Blast cell crisis [Fatal]
  - Dyspnoea [Recovered/Resolved]
  - Hernia [Not Recovered/Not Resolved]
  - Chronic myeloid leukaemia [Unknown]

NARRATIVE: CASE EVENT DATE: 20200429
